FAERS Safety Report 4920410-3 (Version None)
Quarter: 2006Q1

REPORT INFORMATION
  Report Type: 
  Country: None (occurrence: None)
  Receive Date: 20060223
  Receipt Date: 20050422
  Transmission Date: 20060701
  Serious: Yes (Death, Hospitalization)
  Sender: FDA-Public Use
  Company Number: US-MERCK-0504USA04457

PATIENT
  Age: 82 Year
  Sex: Female

DRUGS (8)
  1. VIOXX [Suspect]
     Route: 048
  2. NITRO [Concomitant]
     Route: 061
  3. ASPIRIN [Concomitant]
     Route: 048
  4. CARDIZEM CD [Concomitant]
     Route: 048
  5. LASIX [Concomitant]
     Route: 048
  6. POTASSIUM CHLORIDE [Concomitant]
     Route: 048
  7. LISINOPRIL [Concomitant]
     Route: 048
  8. TAMOXIFEN CITRATE [Concomitant]
     Route: 048

REACTIONS (15)
  - ACUTE MYOCARDIAL INFARCTION [None]
  - ANAEMIA [None]
  - CARDIAC FAILURE CONGESTIVE [None]
  - CARDIOMEGALY [None]
  - CHOLELITHIASIS [None]
  - DECUBITUS ULCER [None]
  - DEHYDRATION [None]
  - ELECTROLYTE IMBALANCE [None]
  - GASTROENTERITIS [None]
  - HYPERNATRAEMIA [None]
  - HYPERTENSION [None]
  - RENAL FAILURE [None]
  - RENAL FAILURE CHRONIC [None]
  - URINARY TRACT INFECTION [None]
  - UROSEPSIS [None]
